FAERS Safety Report 21958739 (Version 1)
Quarter: 2023Q1

REPORT INFORMATION
  Report Type: Report from Study
  Country: MX (occurrence: MX)
  Receive Date: 20230206
  Receipt Date: 20230206
  Transmission Date: 20230418
  Serious: Yes (Hospitalization)
  Sender: FDA-Public Use
  Company Number: MX-Merck Healthcare KGaA-9366963

PATIENT
  Age: 65 Year
  Sex: Male

DRUGS (1)
  1. CETUXIMAB [Suspect]
     Active Substance: CETUXIMAB
     Indication: Colorectal cancer
     Dosage: UNK UNK, WEEKLY (1/W)
     Route: 042
     Dates: start: 20221014

REACTIONS (4)
  - Skin reaction [Recovered/Resolved]
  - Depressed mood [Recovering/Resolving]
  - Haematoma [Not Recovered/Not Resolved]
  - Asthenia [Recovering/Resolving]
